FAERS Safety Report 4326260-3 (Version None)
Quarter: 2004Q1

REPORT INFORMATION
  Report Type: 
  Country: None (occurrence: None)
  Receive Date: 20040329
  Receipt Date: 20020516
  Transmission Date: 20041129
  Serious: Yes (Hospitalization, Other)
  Sender: FDA-Public Use
  Company Number: US-MERCK-0205USA02070

PATIENT
  Age: 69 Year
  Sex: Female
  Weight: 84 kg

DRUGS (5)
  1. CHONDROITIN SULFATE SODIUM AND GLUCOSAMINE HYDROCHLORIDE [Concomitant]
     Route: 065
  2. LANOXIN [Concomitant]
     Route: 065
     Dates: start: 20010316
  3. PREMARIN [Concomitant]
     Indication: VULVOVAGINAL DRYNESS
     Route: 067
  4. LASIX [Concomitant]
     Indication: CARDIAC DISORDER
     Route: 065
     Dates: start: 20010316
  5. VIOXX [Suspect]
     Indication: LOCALISED OSTEOARTHRITIS
     Route: 048
     Dates: start: 20001025, end: 20010328

REACTIONS (29)
  - ABDOMINAL PAIN [None]
  - ANGINA UNSTABLE [None]
  - ARTHRALGIA [None]
  - ASTHENIA [None]
  - CARDIAC FAILURE CONGESTIVE [None]
  - CHEST PAIN [None]
  - CHOLELITHIASIS [None]
  - CONGESTIVE CARDIOMYOPATHY [None]
  - DIARRHOEA [None]
  - DIFFICULTY IN WALKING [None]
  - DILATATION VENTRICULAR [None]
  - DIZZINESS [None]
  - DRUG TOLERANCE DECREASED [None]
  - DRUG TOXICITY [None]
  - DYSPNOEA [None]
  - EJECTION FRACTION DECREASED [None]
  - HAEMANGIOMA [None]
  - HAEMORRHAGE [None]
  - HEPATIC LESION [None]
  - HYPOKINESIA [None]
  - INJURY [None]
  - MITRAL VALVE INCOMPETENCE [None]
  - MYOCARDIAL ISCHAEMIA [None]
  - RENAL FAILURE [None]
  - SPEECH DISORDER [None]
  - STRESS SYMPTOMS [None]
  - VENTRICULAR DYSFUNCTION [None]
  - VISION BLURRED [None]
  - VULVAL DISORDER [None]
